FAERS Safety Report 14563186 (Version 1)
Quarter: 2018Q1

REPORT INFORMATION
  Report Type: Spontaneous
  Country: US (occurrence: US)
  Receive Date: 20180222
  Receipt Date: 20180222
  Transmission Date: 20180509
  Serious: Yes (Hospitalization, Other)
  Sender: FDA-Public Use
  Company Number: US-MYLANLABS-2018M1011325

PATIENT
  Age: 90 Year
  Sex: Female

DRUGS (1)
  1. VUSION [Suspect]
     Active Substance: MICONAZOLE NITRATE\PETROLATUM\ZINC OXIDE
     Indication: MYCOTOXICOSIS
     Dosage: UNK
     Route: 061

REACTIONS (3)
  - Pneumonia [Recovered/Resolved]
  - Pruritus [Recovering/Resolving]
  - Mastitis fungal [Recovering/Resolving]

NARRATIVE: CASE EVENT DATE: 20171011
